FAERS Safety Report 21654282 (Version 2)
Quarter: 2022Q4

REPORT INFORMATION
  Report Type: Other
  Country: GB (occurrence: None)
  Receive Date: 20221129
  Receipt Date: 20221207
  Transmission Date: 20230113
  Serious: Yes (Hospitalization)
  Sender: FDA-Public Use
  Company Number: GB-ROCHE-3226038

PATIENT
  Sex: Female

DRUGS (1)
  1. EVRYSDI [Suspect]
     Active Substance: RISDIPLAM
     Indication: Spinal muscular atrophy
     Dosage: (6.6ML EVERY MORNING)?0.75MG/ML DOSE: 5MG (6.6ML ONCE DAILY)
     Route: 048
     Dates: start: 20210608

REACTIONS (1)
  - Ill-defined disorder [Unknown]
